FAERS Safety Report 21090831 (Version 2)
Quarter: 2022Q3

REPORT INFORMATION
  Report Type: Report from Study
  Country: JP (occurrence: JP)
  Receive Date: 20220716
  Receipt Date: 20220831
  Transmission Date: 20221027
  Serious: Yes (Hospitalization)
  Sender: FDA-Public Use
  Company Number: JP-CELLTRION INC.-2022JP011088

PATIENT

DRUGS (34)
  1. TRASTUZUMAB [Suspect]
     Active Substance: TRASTUZUMAB
     Indication: HER2 positive gastric cancer
     Dosage: 410 MILLIGRAM, QD
     Route: 041
     Dates: start: 20200415, end: 20200415
  2. TRASTUZUMAB [Suspect]
     Active Substance: TRASTUZUMAB
     Dosage: 308 MILLIGRAM, QD
     Route: 041
     Dates: start: 20200513, end: 20200513
  3. TRASTUZUMAB [Suspect]
     Active Substance: TRASTUZUMAB
     Dosage: 308 MILLIGRAM, QD
     Route: 041
     Dates: start: 20200611, end: 20200611
  4. TRASTUZUMAB [Suspect]
     Active Substance: TRASTUZUMAB
     Dosage: 308 MILLIGRAM, QD
     Route: 041
     Dates: start: 20200708, end: 20200708
  5. TRASTUZUMAB [Suspect]
     Active Substance: TRASTUZUMAB
     Dosage: 308 MILLIGRAM, QD
     Route: 041
     Dates: start: 20200729, end: 20200729
  6. TRASTUZUMAB [Suspect]
     Active Substance: TRASTUZUMAB
     Dosage: 308 MILLIGRAM, QD
     Route: 041
     Dates: start: 20200819, end: 20200819
  7. TRASTUZUMAB [Suspect]
     Active Substance: TRASTUZUMAB
     Dosage: 308 MILLIGRAM, QD
     Route: 041
     Dates: start: 20200909, end: 20200909
  8. TRASTUZUMAB [Suspect]
     Active Substance: TRASTUZUMAB
     Dosage: 308 MILLIGRAM, QD
     Route: 041
     Dates: start: 20200930, end: 20200930
  9. TRASTUZUMAB [Suspect]
     Active Substance: TRASTUZUMAB
     Dosage: 304 MILLIGRAM, QD
     Route: 041
     Dates: start: 20201021, end: 20201021
  10. TRASTUZUMAB [Suspect]
     Active Substance: TRASTUZUMAB
     Dosage: 304 MILLIGRAM, QD
     Route: 041
     Dates: start: 20201111, end: 20201111
  11. TRASTUZUMAB [Suspect]
     Active Substance: TRASTUZUMAB
     Dosage: 304 MILLIGRAM, QD
     Route: 041
     Dates: start: 20201202, end: 20201202
  12. TRASTUZUMAB [Suspect]
     Active Substance: TRASTUZUMAB
     Dosage: 304 MILLIGRAM, QD
     Route: 041
     Dates: start: 20201223, end: 20201223
  13. TRASTUZUMAB [Suspect]
     Active Substance: TRASTUZUMAB
     Dosage: 304 MILLIGRAM, QD
     Route: 041
     Dates: start: 20210113, end: 20210113
  14. OXALIPLATIN [Suspect]
     Active Substance: OXALIPLATIN
     Indication: HER2 positive gastric cancer
     Dosage: 130 MILLIGRAM, QD
     Route: 041
     Dates: start: 20200415, end: 20200415
  15. OXALIPLATIN [Suspect]
     Active Substance: OXALIPLATIN
     Dosage: 130 MILLIGRAM, QD
     Route: 041
     Dates: start: 20200513, end: 20200513
  16. OXALIPLATIN [Suspect]
     Active Substance: OXALIPLATIN
     Dosage: 130 MILLIGRAM, QD
     Route: 041
     Dates: start: 20200611, end: 20200611
  17. OXALIPLATIN [Suspect]
     Active Substance: OXALIPLATIN
     Dosage: 130 MILLIGRAM, QD
     Route: 041
     Dates: start: 20200708, end: 20200708
  18. OXALIPLATIN [Suspect]
     Active Substance: OXALIPLATIN
     Dosage: 130 MILLIGRAM, QD
     Route: 041
     Dates: start: 20200729, end: 20200729
  19. OXALIPLATIN [Suspect]
     Active Substance: OXALIPLATIN
     Dosage: 130 MILLIGRAM, QD
     Route: 041
     Dates: start: 20200819, end: 20200819
  20. OXALIPLATIN [Suspect]
     Active Substance: OXALIPLATIN
     Dosage: 130 MILLIGRAM, QD
     Route: 041
     Dates: start: 20200909, end: 20200909
  21. OXALIPLATIN [Suspect]
     Active Substance: OXALIPLATIN
     Dosage: 130 MILLIGRAM, QD
     Route: 041
     Dates: start: 20200930, end: 20200930
  22. GIMERACIL\OTERACIL\TEGAFUR [Suspect]
     Active Substance: GIMERACIL\OTERACIL\TEGAFUR
     Indication: HER2 positive gastric cancer
     Dosage: 80 MILLIGRAM, QD
     Route: 048
     Dates: start: 20200415, end: 20200428
  23. GIMERACIL\OTERACIL\TEGAFUR [Suspect]
     Active Substance: GIMERACIL\OTERACIL\TEGAFUR
     Dosage: 80 MILLIGRAM, QD
     Route: 048
     Dates: start: 20200513, end: 20200526
  24. GIMERACIL\OTERACIL\TEGAFUR [Suspect]
     Active Substance: GIMERACIL\OTERACIL\TEGAFUR
     Dosage: 60 MILLIGRAM, QD
     Route: 048
     Dates: start: 20200611, end: 20200624
  25. GIMERACIL\OTERACIL\TEGAFUR [Suspect]
     Active Substance: GIMERACIL\OTERACIL\TEGAFUR
     Dosage: 60 MILLIGRAM, QD
     Route: 048
     Dates: start: 20200708, end: 20200721
  26. GIMERACIL\OTERACIL\TEGAFUR [Suspect]
     Active Substance: GIMERACIL\OTERACIL\TEGAFUR
     Dosage: 60 MILLIGRAM, QD
     Route: 048
     Dates: start: 20200729, end: 20200811
  27. GIMERACIL\OTERACIL\TEGAFUR [Suspect]
     Active Substance: GIMERACIL\OTERACIL\TEGAFUR
     Dosage: 60 MILLIGRAM, QD
     Route: 048
     Dates: start: 20200819, end: 20200901
  28. GIMERACIL\OTERACIL\TEGAFUR [Suspect]
     Active Substance: GIMERACIL\OTERACIL\TEGAFUR
     Dosage: 60 MILLIGRAM, QD
     Route: 048
     Dates: start: 20200909, end: 20200922
  29. GIMERACIL\OTERACIL\TEGAFUR [Suspect]
     Active Substance: GIMERACIL\OTERACIL\TEGAFUR
     Dosage: 60 MILLIGRAM, QD
     Route: 048
     Dates: start: 20200930, end: 20201013
  30. GIMERACIL\OTERACIL\TEGAFUR [Suspect]
     Active Substance: GIMERACIL\OTERACIL\TEGAFUR
     Dosage: 60 MILLIGRAM, QD
     Route: 048
     Dates: start: 20201021, end: 20201104
  31. GIMERACIL\OTERACIL\TEGAFUR [Suspect]
     Active Substance: GIMERACIL\OTERACIL\TEGAFUR
     Dosage: 60 MILLIGRAM, QD
     Route: 048
     Dates: start: 20201111, end: 20201124
  32. GIMERACIL\OTERACIL\TEGAFUR [Suspect]
     Active Substance: GIMERACIL\OTERACIL\TEGAFUR
     Dosage: 60 MILLIGRAM, QD
     Route: 048
     Dates: start: 20201202, end: 20201215
  33. GIMERACIL\OTERACIL\TEGAFUR [Suspect]
     Active Substance: GIMERACIL\OTERACIL\TEGAFUR
     Dosage: 60 MILLIGRAM, QD
     Route: 048
     Dates: start: 20201223, end: 20210105
  34. GIMERACIL\OTERACIL\TEGAFUR [Suspect]
     Active Substance: GIMERACIL\OTERACIL\TEGAFUR
     Dosage: 60 MILLIGRAM, QD
     Route: 048
     Dates: start: 20210113, end: 20210127

REACTIONS (9)
  - Aspartate aminotransferase increased [Not Recovered/Not Resolved]
  - Alanine aminotransferase increased [Not Recovered/Not Resolved]
  - Gamma-glutamyltransferase increased [Not Recovered/Not Resolved]
  - Venous thrombosis limb [Not Recovered/Not Resolved]
  - Peripheral sensory neuropathy [Not Recovered/Not Resolved]
  - Diarrhoea [Recovered/Resolved]
  - Diarrhoea [Recovering/Resolving]
  - Palmar-plantar erythrodysaesthesia syndrome [Recovering/Resolving]
  - Off label use [Unknown]

NARRATIVE: CASE EVENT DATE: 20200425
